FAERS Safety Report 10342085 (Version 2)
Quarter: 2014Q3

REPORT INFORMATION
  Report Type: Spontaneous
  Country: US (occurrence: None)
  Receive Date: 20140723
  Receipt Date: 20140808
  Transmission Date: 20150326
  Serious: Yes (Other)
  Sender: FDA-Public Use
  Company Number: 2014-US-008852

PATIENT
  Age: 54 Year
  Sex: Female
  Weight: 72.6 kg

DRUGS (14)
  1. XYREM [Suspect]
     Active Substance: SODIUM OXYBATE
     Indication: NARCOLEPSY
     Route: 048
     Dates: start: 201306
  2. VITAMIN 15 [Concomitant]
  3. SYNTHROID [Concomitant]
     Active Substance: LEVOTHYROXINE SODIUM
  4. MAGNESIUM (ALUMINIUM HYDROXIDE, MAGNESIUM HYDROXIDE) [Concomitant]
  5. ESTRACE [Concomitant]
     Active Substance: ESTRADIOL
  6. CALCIUM [Concomitant]
     Active Substance: CALCIUM
  7. IRON [Concomitant]
     Active Substance: IRON
  8. GABAPENTIN. [Concomitant]
     Active Substance: GABAPENTIN
  9. VITAMIN D3 [Concomitant]
     Active Substance: CHOLECALCIFEROL
  10. XYREM [Suspect]
     Active Substance: SODIUM OXYBATE
     Indication: SOMNOLENCE
     Route: 048
     Dates: start: 201306
  11. CYMBALTA [Concomitant]
     Active Substance: DULOXETINE HYDROCHLORIDE
  12. XYREM [Suspect]
     Active Substance: SODIUM OXYBATE
     Indication: CATAPLEXY
     Route: 048
     Dates: start: 201306
  13. DEPAKOTE [Concomitant]
     Active Substance: DIVALPROEX SODIUM
  14. RELPAX [Concomitant]
     Active Substance: ELETRIPTAN HYDROBROMIDE

REACTIONS (2)
  - Ankle fracture [None]
  - Fall [None]

NARRATIVE: CASE EVENT DATE: 20140619
